FAERS Safety Report 19251228 (Version 4)
Quarter: 2021Q3

REPORT INFORMATION
  Report Type: Report from Study
  Country: US (occurrence: US)
  Receive Date: 20210512
  Receipt Date: 20210723
  Transmission Date: 20211014
  Serious: Yes (Death, Hospitalization)
  Sender: FDA-Public Use
  Company Number: US-SEATTLE GENETICS-2021SGN02296

PATIENT
  Age: 62 Year
  Sex: Female

DRUGS (2)
  1. TUCATINIB [Suspect]
     Active Substance: TUCATINIB
     Indication: BREAST CANCER FEMALE
     Dosage: 50 MG, BID (6 TABLETS BID)
     Route: 048
  2. CAPECITABINE. [Suspect]
     Active Substance: CAPECITABINE
     Indication: PRODUCT USED FOR UNKNOWN INDICATION

REACTIONS (10)
  - Peripheral swelling [Unknown]
  - Diarrhoea [Unknown]
  - Death [Fatal]
  - Stomatitis [Unknown]
  - Joint swelling [Unknown]
  - Periorbital swelling [Unknown]
  - Muscle spasms [Unknown]
  - Fatigue [Unknown]
  - Eating disorder [Unknown]
  - Pneumonia [Unknown]

NARRATIVE: CASE EVENT DATE: 20210425
